FAERS Safety Report 6091219-5 (Version None)
Quarter: 2009Q1

REPORT INFORMATION
  Report Type: 
  Country: None (occurrence: None)
  Receive Date: 20090223
  Receipt Date: 20090216
  Transmission Date: 20090719
  Serious: Yes (Other)
  Sender: FDA-Public Use
  Company Number: 2009AL000951

PATIENT
  Age: 34 Year
  Sex: Male

DRUGS (6)
  1. IRINOTECAN HCL [Suspect]
     Indication: COLON CANCER
     Dosage: 350 MG/M**2; IV
  2. CAPECITABINE [Concomitant]
  3. OXALIPLATIN [Concomitant]
  4. DEXAMETHASONE [Concomitant]
  5. GRANISSTRON [Concomitant]
  6. OXYCODONE [Concomitant]

REACTIONS (5)
  - CHOLINERGIC SYNDROME [None]
  - DISEASE PROGRESSION [None]
  - DYSARTHRIA [None]
  - NERVOUS SYSTEM DISORDER [None]
  - NEUROTOXICITY [None]
